FAERS Safety Report 10451172 (Version 2)
Quarter: 2014Q3

REPORT INFORMATION
  Report Type: Spontaneous
  Country: US (occurrence: US)
  Receive Date: 20140912
  Receipt Date: 20140912
  Transmission Date: 20150326
  Serious: No
  Sender: FDA-Public Use
  Company Number: US-GALDERMA-US14002936

PATIENT
  Age: 43 Year
  Sex: Male
  Weight: 68 kg

DRUGS (5)
  1. MIRVASO [Suspect]
     Active Substance: BRIMONIDINE TARTRATE
     Indication: ROSACEA
  2. PROTOPIC [Concomitant]
     Active Substance: TACROLIMUS
     Dosage: 0.1%
     Route: 061
     Dates: start: 20140314, end: 201404
  3. MUPIROCIN. [Concomitant]
     Active Substance: MUPIROCIN
     Dosage: 2%
     Route: 061
     Dates: start: 20140507, end: 20140517
  4. MIRVASO [Suspect]
     Active Substance: BRIMONIDINE TARTRATE
     Indication: INFLAMMATION
     Dosage: 0.33%
     Route: 061
     Dates: start: 201310, end: 201406
  5. EPICREAM [Concomitant]
     Route: 061
     Dates: start: 20140411

REACTIONS (4)
  - Flushing [Not Recovered/Not Resolved]
  - Erythema [Not Recovered/Not Resolved]
  - Condition aggravated [Not Recovered/Not Resolved]
  - Rosacea [Not Recovered/Not Resolved]

NARRATIVE: CASE EVENT DATE: 20140307
